FAERS Safety Report 4383249-6 (Version None)
Quarter: 2004Q2

REPORT INFORMATION
  Report Type: 
  Country: None (occurrence: None)
  Receive Date: 20040622
  Receipt Date: 20040622
  Transmission Date: 20050107
  Serious: Yes (Other)
  Sender: FDA-Public Use
  Company Number: None

PATIENT
  Age: 83 Year
  Sex: Female
  Weight: 59.4212 kg

DRUGS (3)
  1. LOVENOX [Suspect]
     Indication: KNEE ARTHROPLASTY
     Dosage: 40 MG DAILY SUBCUTANEOUS
     Route: 058
     Dates: start: 20040526, end: 20040607
  2. LOVENOX [Suspect]
     Indication: PROPHYLAXIS
     Dosage: 40 MG DAILY SUBCUTANEOUS
     Route: 058
     Dates: start: 20040526, end: 20040607
  3. LOVENOX [Suspect]
     Dosage: 30 MG Q12H SUBCUTANEOUS
     Route: 058
     Dates: start: 20040520, end: 20040525

REACTIONS (3)
  - ANOREXIA [None]
  - DIARRHOEA [None]
  - WEIGHT DECREASED [None]
